FAERS Safety Report 4725921-1 (Version None)
Quarter: 2005Q3

REPORT INFORMATION
  Report Type: 
  Country: None (occurrence: None)
  Receive Date: 20050727
  Receipt Date: 20050721
  Transmission Date: 20060218
  Serious: Yes (Hospitalization)
  Sender: FDA-Public Use
  Company Number: US-GLAXOSMITHKLINE-A0567183A

PATIENT
  Age: 54 Year
  Sex: Female

DRUGS (7)
  1. BEXXAR [Suspect]
     Indication: NON-HODGKIN'S LYMPHOMA
     Route: 042
     Dates: start: 20050309
  2. KEFLEX [Concomitant]
  3. ALBUTEROL [Concomitant]
  4. GEMFIBROZIL [Concomitant]
  5. LORAZEPAM [Concomitant]
  6. MULTI-VITAMIN [Concomitant]
  7. CALCIUM GLUCONATE [Concomitant]

REACTIONS (9)
  - EYE IRRITATION [None]
  - INFECTION [None]
  - LYMPHADENOPATHY [None]
  - NASOPHARYNGITIS [None]
  - PYREXIA [None]
  - RED BLOOD CELL COUNT DECREASED [None]
  - SURGERY [None]
  - WHITE BLOOD CELL COUNT DECREASED [None]
  - WHITE BLOOD CELL COUNT INCREASED [None]
